FAERS Safety Report 5538547-7 (Version None)
Quarter: 2007Q4

REPORT INFORMATION
  Report Type: 
  Country: None (occurrence: None)
  Receive Date: 20071208
  Receipt Date: 20061206
  Transmission Date: 20080405
  Serious: No
  Sender: FDA-Public Use
  Company Number: US-AMGEN-KDL202786

PATIENT
  Sex: Male

DRUGS (2)
  1. ENBREL [Suspect]
     Indication: JUVENILE ARTHRITIS
     Route: 058
     Dates: start: 20060830
  2. METHOTREXATE [Concomitant]
     Dates: start: 20060401

REACTIONS (3)
  - ARTHRALGIA [None]
  - INJECTION SITE PAIN [None]
  - OEDEMA PERIPHERAL [None]
